FAERS Safety Report 7104781-8 (Version None)
Quarter: 2010Q4

REPORT INFORMATION
  Report Type: 
  Country: None (occurrence: None)
  Receive Date: 20101109
  Receipt Date: 20101027
  Transmission Date: 20110411
  Serious: Yes (Other)
  Sender: FDA-Public Use
  Company Number: 2010S1000361

PATIENT
  Age: 28 Year
  Sex: Male

DRUGS (5)
  1. AZATHIOPRINE [Suspect]
     Indication: CROHN'S DISEASE
     Dosage: PO
     Route: 048
     Dates: start: 19980101
  2. MESALAMINE [Suspect]
     Indication: CROHN'S DISEASE
     Dates: start: 19980101
  3. WIRELESS CAPSULE (NO PREF. NAME) [Suspect]
     Indication: ENTEROSTOMY
     Dates: start: 20060101, end: 20080101
  4. UNSPECIFIED IRON MEDICATION [Concomitant]
  5. UNSPECIFIED CORTICOSTEROIDS [Concomitant]

REACTIONS (6)
  - ANAEMIA [None]
  - DIZZINESS [None]
  - HAEMATOCHEZIA [None]
  - IRON DEFICIENCY ANAEMIA [None]
  - MEDICATION ERROR [None]
  - SMALL INTESTINAL HAEMORRHAGE [None]
